FAERS Safety Report 24384612 (Version 2)
Quarter: 2024Q4

REPORT INFORMATION
  Report Type: Spontaneous
  Country: US (occurrence: US)
  Receive Date: 20241001
  Receipt Date: 20241121
  Transmission Date: 20250115
  Serious: Yes (Other)
  Sender: PFIZER
  Company Number: US-PFIZER INC-202400264675

PATIENT
  Age: 33 Year
  Sex: Female
  Weight: 45.36 kg

DRUGS (4)
  1. GENOTROPIN [Suspect]
     Active Substance: SOMATROPIN
     Dosage: 0.6
  2. PROGESTERONE [Concomitant]
     Active Substance: PROGESTERONE
     Indication: Infertility female
     Dosage: 100 ML
  3. ZOLOFT [Concomitant]
     Active Substance: SERTRALINE HYDROCHLORIDE
     Indication: Obsessive-compulsive disorder
     Dosage: 100 ML
  4. ZOLOFT [Concomitant]
     Active Substance: SERTRALINE HYDROCHLORIDE
     Indication: Stress

REACTIONS (5)
  - Blood iron decreased [Unknown]
  - Device leakage [Unknown]
  - Device information output issue [Unknown]
  - Device issue [Unknown]
  - Drug dose omission by device [Unknown]
